FAERS Safety Report 16179277 (Version 1)
Quarter: 2019Q2

REPORT INFORMATION
  Report Type: Spontaneous
  Country: FR (occurrence: FR)
  Receive Date: 20190410
  Receipt Date: 20190410
  Transmission Date: 20190711
  Serious: Yes (Hospitalization)
  Sender: FDA-Public Use
  Company Number: FR-009507513-1904FRA000966

PATIENT
  Age: 62 Year
  Sex: Male

DRUGS (11)
  1. RIBAVIRIN. [Suspect]
     Active Substance: RIBAVIRIN
     Indication: HEPATITIS E
     Dosage: 1200 MILLIGRAM, QD
     Route: 048
     Dates: start: 201809, end: 20181203
  2. BECILAN [Concomitant]
     Active Substance: PYRIDOXINE
     Dosage: 2 DOSAGE FORM, QD
     Route: 048
  3. SPIRONOLACTONE. [Concomitant]
     Active Substance: SPIRONOLACTONE
     Dosage: 50 MILLIGRAM, QD
     Route: 048
  4. KARDEGIC [Concomitant]
     Active Substance: ASPIRIN DL-LYSINE
     Dosage: 1 DOSAGE FORM, QD
     Route: 048
  5. LEDERFOLINE [Concomitant]
     Active Substance: LEUCOVORIN CALCIUM
     Dosage: 1 DOSAGE FORM, QD
     Route: 048
     Dates: start: 201809
  6. PANTOPRAZOLE [Suspect]
     Active Substance: PANTOPRAZOLE
     Indication: MELAENA
     Dosage: 40 MG, QD
     Route: 048
     Dates: start: 201809, end: 20181203
  7. CALCIDOSE [CALCIUM CARBONATE] [Concomitant]
     Active Substance: CALCIUM CARBONATE
     Dosage: UNK
     Route: 048
  8. JANUMET [Concomitant]
     Active Substance: METFORMIN HYDROCHLORIDE\SITAGLIPTIN PHOSPHATE
     Dosage: 2 DF, QD
     Route: 048
  9. LANTUS [Concomitant]
     Active Substance: INSULIN GLARGINE
     Dosage: 10 INTERNATIONAL UNIT, QD
     Route: 058
  10. BACTRIM [Suspect]
     Active Substance: SULFAMETHOXAZOLE\TRIMETHOPRIM
     Indication: PNEUMOCYSTIS JIROVECII PNEUMONIA
     Dosage: 800 MILLIGRAM, QD
     Route: 048
     Dates: start: 201809, end: 20181203
  11. METFORMIN [Concomitant]
     Active Substance: METFORMIN HYDROCHLORIDE
     Dosage: 1 GRAM, QD
     Route: 048

REACTIONS (1)
  - Agranulocytosis [Recovered/Resolved]

NARRATIVE: CASE EVENT DATE: 20181203
